FAERS Safety Report 6850913-6 (Version None)
Quarter: 2010Q3

REPORT INFORMATION
  Report Type: 
  Country: None (occurrence: None)
  Receive Date: 20100716
  Receipt Date: 20071121
  Transmission Date: 20110219
  Serious: Yes (Other)
  Sender: FDA-Public Use
  Company Number: US-PFIZER INC-2007088967

PATIENT
  Sex: Female
  Weight: 136.1 kg

DRUGS (8)
  1. CHANTIX [Suspect]
     Indication: SMOKING CESSATION THERAPY
     Dates: start: 20070731
  2. XANAX [Concomitant]
  3. BUPROPION [Concomitant]
  4. CELEXA [Concomitant]
  5. NEXIUM [Concomitant]
  6. SEROQUEL [Concomitant]
  7. FLEXERIL [Concomitant]
  8. LEVOTHYROXINE SODIUM [Concomitant]

REACTIONS (3)
  - HEADACHE [None]
  - HYPERTENSION [None]
  - NAUSEA [None]
